FAERS Safety Report 12733971 (Version 3)
Quarter: 2016Q4

REPORT INFORMATION
  Report Type: Spontaneous
  Country: US (occurrence: US)
  Receive Date: 20160912
  Receipt Date: 20161209
  Transmission Date: 20170207
  Serious: Yes (Hospitalization, Other)
  Sender: FDA-Public Use
  Company Number: US-TORRENT-00001258

PATIENT
  Age: 71 Year
  Sex: Female
  Weight: 65 kg

DRUGS (8)
  1. PROTONIX [Concomitant]
     Active Substance: PANTOPRAZOLE SODIUM
     Indication: HYPERCHLORHYDRIA
     Dosage: ONCE DAILY FOR EXCESS STOMACH ACID
  2. ELIQUIS [Concomitant]
     Active Substance: APIXABAN
     Indication: CEREBROVASCULAR ACCIDENT
     Dosage: ONE TABLET TWICE A DAY TO REDUCE RISK OF STROKE AND SYSTEMIC EMBOLISM
     Dates: start: 200909
  3. TRIAMTERENE. [Concomitant]
     Active Substance: TRIAMTERENE
     Indication: PRODUCT USED FOR UNKNOWN INDICATION
     Dosage: HALF OF 25MG TABLET PER DAY
     Dates: start: 201604
  4. SYMBICORT [Concomitant]
     Active Substance: BUDESONIDE\FORMOTEROL FUMARATE DIHYDRATE
     Indication: ASTHMA
     Dosage: SYMBICORT 160/4.5 TWO PUFFS TWICE DAILY FOR ASTHMA
     Dates: start: 201602
  5. METOPROLOL. [Concomitant]
     Active Substance: METOPROLOL
     Indication: HYPERTENSION
     Dosage: ONE TABLET TWICE A DAY FOR ANGINA AND HYPERTENSION
     Dates: start: 201311
  6. ASPIRIN. [Concomitant]
     Active Substance: ASPIRIN
     Indication: ISCHAEMIC STROKE
     Route: 048
  7. LOSARTAN POTASSIUM TABLET [Suspect]
     Active Substance: LOSARTAN POTASSIUM
     Indication: BLOOD PRESSURE INCREASED
     Dates: start: 20160201, end: 201604
  8. CRESTOR [Concomitant]
     Active Substance: ROSUVASTATIN CALCIUM
     Indication: BLOOD CHOLESTEROL INCREASED
     Dosage: ONCE DAILY FOR HIGH CHOLESTEROL AND HIGH TRIGLYCERIDES

REACTIONS (15)
  - Peripheral swelling [Recovered/Resolved]
  - Hypertensive crisis [Recovered/Resolved]
  - Face oedema [Recovered/Resolved]
  - Chest pain [Recovered/Resolved]
  - Wheezing [Recovered/Resolved]
  - Aphonia [Recovered/Resolved]
  - Weight increased [Recovered/Resolved]
  - Swollen tongue [Recovered/Resolved]
  - Heart rate increased [Recovered/Resolved]
  - Dyspnoea [Recovered/Resolved]
  - Feeling abnormal [Recovered/Resolved]
  - Sinusitis [Unknown]
  - Vomiting [Recovered/Resolved]
  - Rhinitis allergic [Unknown]
  - Depression [Unknown]

NARRATIVE: CASE EVENT DATE: 20160219
